FAERS Safety Report 6883337-6 (Version None)
Quarter: 2010Q3

REPORT INFORMATION
  Report Type: 
  Country: None (occurrence: None)
  Receive Date: 20100727
  Receipt Date: 20071219
  Transmission Date: 20110219
  Serious: Yes (Other)
  Sender: FDA-Public Use
  Company Number: US-PFIZER INC-2006148263

PATIENT
  Sex: Female
  Weight: 68 kg

DRUGS (8)
  1. CELEBREX [Suspect]
     Indication: OSTEOARTHRITIS
     Dates: start: 20050901, end: 20061101
  2. METFORMIN HCL [Concomitant]
  3. ACTOS [Concomitant]
  4. NEXIUM [Concomitant]
  5. ACCURETIC [Concomitant]
  6. LIPITOR [Concomitant]
  7. VERAPAMIL [Concomitant]
  8. NIASPAN [Concomitant]

REACTIONS (4)
  - CANDIDIASIS [None]
  - GASTROINTESTINAL HAEMORRHAGE [None]
  - HAEMATOCRIT DECREASED [None]
  - MOUTH ULCERATION [None]
